FAERS Safety Report 7104773-9 (Version None)
Quarter: 2010Q4

REPORT INFORMATION
  Report Type: 
  Country: None (occurrence: None)
  Receive Date: 20101109
  Receipt Date: 20101105
  Transmission Date: 20110411
  Serious: Yes (Other)
  Sender: FDA-Public Use
  Company Number: SP03219

PATIENT
  Age: 83 Year
  Sex: Male

DRUGS (3)
  1. BALSALAZIDE DISODIUM [Suspect]
     Indication: COLITIS ULCERATIVE
     Dosage: 3 GM, (1.5 GM, 2 IN 1 D), ORAL
     Route: 048
  2. VALPROATE SODIUM [Suspect]
     Indication: EPILEPSY
     Dosage: 1400MG (700 MG, 2 IN 1 D), ORAL
     Route: 048
  3. TRIMETHOPRIM [Concomitant]

REACTIONS (1)
  - IDIOPATHIC THROMBOCYTOPENIC PURPURA [None]
